FAERS Safety Report 10769361 (Version 1)
Quarter: 2015Q1

REPORT INFORMATION
  Report Type: Spontaneous
  Country: US (occurrence: None)
  Receive Date: 20150204
  Receipt Date: 20150204
  Transmission Date: 20150721
  Serious: Yes (Death)
  Sender: FDA-Public Use
  Company Number: 2726896

PATIENT
  Age: 23 Year
  Sex: Female

DRUGS (1)
  1. SODIUM NITROPRUSSIDE [Suspect]
     Active Substance: SODIUM NITROPRUSSIDE
     Indication: CARDIAC FAILURE ACUTE
     Route: 041
     Dates: start: 2013, end: 2013

REACTIONS (8)
  - Blood pressure decreased [None]
  - Medication error [None]
  - Acute kidney injury [None]
  - Blood pH decreased [None]
  - Pulseless electrical activity [None]
  - Heart rate increased [None]
  - Toxicity to various agents [None]
  - Haemodialysis [None]

NARRATIVE: CASE EVENT DATE: 2013
